FAERS Safety Report 25899858 (Version 1)
Quarter: 2025Q4

REPORT INFORMATION
  Report Type: Report from Study
  Country: CN (occurrence: CN)
  Receive Date: 20251009
  Receipt Date: 20251009
  Transmission Date: 20260118
  Serious: Yes (Other)
  Sender: ROCHE
  Company Number: CN-ROCHE-10000357525

PATIENT
  Age: 49 Year
  Sex: Female
  Weight: 50 kg

DRUGS (32)
  1. POLATUZUMAB VEDOTIN [Suspect]
     Active Substance: POLATUZUMAB VEDOTIN
     Indication: Diffuse large B-cell lymphoma
     Route: 042
     Dates: start: 20241205, end: 20241205
  2. POLATUZUMAB VEDOTIN [Suspect]
     Active Substance: POLATUZUMAB VEDOTIN
     Route: 042
     Dates: start: 20250316, end: 20250316
  3. RITUXIMAB [Suspect]
     Active Substance: RITUXIMAB
     Indication: Diffuse large B-cell lymphoma
     Route: 042
     Dates: start: 20241004, end: 20241204
  4. RITUXIMAB [Suspect]
     Active Substance: RITUXIMAB
     Route: 042
     Dates: start: 20250315, end: 20250315
  5. CYCLOPHOSPHAMIDE [Suspect]
     Active Substance: CYCLOPHOSPHAMIDE
     Indication: Diffuse large B-cell lymphoma
     Route: 042
     Dates: start: 20241205, end: 20241207
  6. CARBOPLATIN [Suspect]
     Active Substance: CARBOPLATIN
     Indication: Diffuse large B-cell lymphoma
     Route: 042
     Dates: start: 20241206, end: 20241206
  7. CARBOPLATIN [Suspect]
     Active Substance: CARBOPLATIN
     Route: 042
     Dates: start: 20250317, end: 20250317
  8. ETOPOSIDE [Suspect]
     Active Substance: ETOPOSIDE
     Indication: Diffuse large B-cell lymphoma
     Route: 042
     Dates: start: 20241205, end: 20241207
  9. ETOPOSIDE [Suspect]
     Active Substance: ETOPOSIDE
     Route: 042
     Dates: start: 20250316, end: 20250317
  10. ENTECAVIR [Concomitant]
     Active Substance: ENTECAVIR
  11. LEUCOGEN [Concomitant]
     Active Substance: LEUCOGEN
  12. Cefaclor extended-release tablets [Concomitant]
  13. Heptapopalethanolamine tablets [Concomitant]
  14. Polyene phosphatidylcholine capsules [Concomitant]
  15. Omeprazole Enteric-coated Capsules [Concomitant]
  16. ESTAZOLAM [Concomitant]
     Active Substance: ESTAZOLAM
  17. LEVOFLOXACIN [Concomitant]
     Active Substance: LEVOFLOXACIN
  18. ursodeoxycholic acid capsule [Concomitant]
  19. Valacyclovir HydrochlorideTablets [Concomitant]
  20. Drospirenone and ethinylestradiol tablets [Concomitant]
  21. Compound Gargle Solution Chlorhexidine Giuconatie [Concomitant]
  22. FLUCONAZOLE [Concomitant]
     Active Substance: FLUCONAZOLE
  23. Alprostadil Injection [Concomitant]
  24. FUROSEMIDE [Concomitant]
     Active Substance: FUROSEMIDE
  25. TORSEMIDE [Concomitant]
     Active Substance: TORSEMIDE
  26. Magnesium Isoglycyrrhizinate Injection [Concomitant]
  27. Omeprazole Sodium for Injection [Concomitant]
  28. POTASSIUM CHLORIDE [Concomitant]
     Active Substance: POTASSIUM CHLORIDE
  29. Ondansetron Hydrochloride Injection [Concomitant]
  30. DEXAMETHASONE SODIUM PHOSPHATE [Concomitant]
     Active Substance: DEXAMETHASONE SODIUM PHOSPHATE
  31. ZOLPIDEM TARTRATE [Concomitant]
     Active Substance: ZOLPIDEM TARTRATE
  32. Salbutamol Sulphate Aerosol [Concomitant]

REACTIONS (3)
  - Neutrophil count decreased [Recovered/Resolved]
  - Aspartate aminotransferase increased [Recovered/Resolved]
  - White blood cell count decreased [Recovered/Resolved]

NARRATIVE: CASE EVENT DATE: 20250429
